FAERS Safety Report 10331991 (Version 2)
Quarter: 2014Q3

REPORT INFORMATION
  Report Type: Spontaneous
  Country: ZA (occurrence: ZA)
  Receive Date: 20140722
  Receipt Date: 20140722
  Transmission Date: 20150326
  Serious: Yes (Other)
  Sender: FDA-Public Use
  Company Number: ZA-ABBVIE-14P-143-1259874-00

PATIENT
  Age: 10 Year
  Sex: Female
  Weight: 38.2 kg

DRUGS (2)
  1. LUCRIN DEPOT [Suspect]
     Active Substance: LEUPROLIDE ACETATE
     Indication: PRECOCIOUS PUBERTY
     Route: 030
     Dates: start: 201402, end: 201404
  2. LUCRIN DEPOT [Suspect]
     Active Substance: LEUPROLIDE ACETATE
     Dates: start: 201406

REACTIONS (11)
  - Injection site abscess [Recovered/Resolved]
  - Injection site inflammation [Not Recovered/Not Resolved]
  - Injection site abscess [Not Recovered/Not Resolved]
  - Influenza [Recovered/Resolved]
  - Bacterial infection [Unknown]
  - Injection site haemorrhage [Not Recovered/Not Resolved]
  - Injection site mass [Not Recovered/Not Resolved]
  - Pyrexia [Recovered/Resolved]
  - Impaired healing [Not Recovered/Not Resolved]
  - Scar [Unknown]
  - Injection site pain [Not Recovered/Not Resolved]

NARRATIVE: CASE EVENT DATE: 201404
